FAERS Safety Report 6084085-5 (Version None)
Quarter: 2009Q1

REPORT INFORMATION
  Report Type: 
  Country: None (occurrence: None)
  Receive Date: 20090204
  Receipt Date: 20080825
  Transmission Date: 20090719
  Serious: Yes (Life-Threatening, Hospitalization)
  Sender: FDA-Public Use
  Company Number: 278795

PATIENT
  Age: 61 Year
  Sex: Male

DRUGS (8)
  1. NOVOLOG [Suspect]
     Indication: INSULIN-REQUIRING TYPE 2 DIABETES MELLITUS
     Dosage: SLIDING SCALE, SUBCUTANEOUS
     Route: 058
  2. SANDOSTATIN         /00821001/ (OCTREOTIDE) [Concomitant]
  3. ZESTRIL [Concomitant]
  4. CYMBALTA [Concomitant]
  5. SEROQUEL [Concomitant]
  6. LIPITOR [Concomitant]
  7. CATAPRES             /00171101/ (CLONIDINE) [Concomitant]
  8. AMBIEN [Concomitant]

REACTIONS (2)
  - KETOACIDOSIS [None]
  - LOSS OF CONSCIOUSNESS [None]
